FAERS Safety Report 10790175 (Version 1)
Quarter: 2015Q1

REPORT INFORMATION
  Report Type: Spontaneous
  Country: RU (occurrence: RU)
  Receive Date: 20150212
  Receipt Date: 20150212
  Transmission Date: 20150721
  Serious: Yes (Other)
  Sender: FDA-Public Use
  Company Number: RU-ABBVIE-15P-251-1345521-00

PATIENT
  Age: 20 Year
  Sex: Female

DRUGS (1)
  1. DEPAKINE CHRONO [Suspect]
     Active Substance: VALPROATE SODIUM
     Indication: PRODUCT USED FOR UNKNOWN INDICATION
     Route: 048

REACTIONS (5)
  - Weight increased [Recovering/Resolving]
  - Epilepsy [Recovering/Resolving]
  - Somnolence [Recovering/Resolving]
  - Alopecia [Recovering/Resolving]
  - Thrombocytopenia [Recovering/Resolving]
